FAERS Safety Report 15418642 (Version 1)
Quarter: 2018Q3

REPORT INFORMATION
  Report Type: Spontaneous
  Country: US (occurrence: US)
  Receive Date: 20180924
  Receipt Date: 20180924
  Transmission Date: 20181010
  Serious: No
  Sender: FDA-Public Use
  Company Number: US-BIOVITRUM-2018US0433

PATIENT
  Sex: Male
  Weight: 2.42 kg

DRUGS (5)
  1. SULFASALAZINE. [Suspect]
     Active Substance: SULFASALAZINE
     Route: 064
  2. HYDROXYCHLOROQUINE [Suspect]
     Active Substance: HYDROXYCHLOROQUINE
     Route: 064
  3. METHYLPREDNISOLONE. [Suspect]
     Active Substance: METHYLPREDNISOLONE
     Route: 064
  4. ANAKINRA [Suspect]
     Active Substance: ANAKINRA
     Indication: STILL^S DISEASE
     Route: 064
  5. CELECOXIB. [Suspect]
     Active Substance: CELECOXIB
     Route: 064

REACTIONS (5)
  - Low birth weight baby [Recovered/Resolved]
  - Cardiac murmur [Recovered/Resolved]
  - Jaundice neonatal [Recovered/Resolved]
  - Hydrocele [Recovered/Resolved]
  - Foetal exposure during pregnancy [Recovered/Resolved]
